FAERS Safety Report 21261867 (Version 1)
Quarter: 2022Q3

REPORT INFORMATION
  Report Type: Report from Study
  Country: AR (occurrence: AR)
  Receive Date: 20220827
  Receipt Date: 20220827
  Transmission Date: 20221026
  Serious: Yes (Other)
  Sender: FDA-Public Use
  Company Number: AR-NOVARTISPH-NVSC2022AR193039

PATIENT
  Sex: Female

DRUGS (1)
  1. DIOVAN [Suspect]
     Active Substance: VALSARTAN
     Indication: Hypertension
     Dosage: 1 OF 80 (UNITS NOT PROVIDED), QD, (STARTED SINCE SHE WAS 40 YEARS OLD)
     Route: 065

REACTIONS (1)
  - Deafness [Not Recovered/Not Resolved]
